FAERS Safety Report 18247921 (Version 1)
Quarter: 2020Q3

REPORT INFORMATION
  Report Type: Spontaneous
  Country: US (occurrence: US)
  Receive Date: 20200909
  Receipt Date: 20200909
  Transmission Date: 20201103
  Serious: No
  Sender: FDA-Public Use
  Company Number: US-BAYER-2020-189058

PATIENT
  Sex: Female

DRUGS (2)
  1. MIRALAX [Suspect]
     Active Substance: POLYETHYLENE GLYCOL 3350
     Dosage: 1/3 CAP
     Route: 048
     Dates: start: 20200814, end: 20200824
  2. MIRALAX [Suspect]
     Active Substance: POLYETHYLENE GLYCOL 3350
     Dosage: 1/4 CAP
     Route: 048
     Dates: start: 20200814, end: 20200824

REACTIONS (4)
  - Incorrect dose administered [Unknown]
  - Prescribed underdose [None]
  - Nasal discomfort [Unknown]
  - Head discomfort [Unknown]

NARRATIVE: CASE EVENT DATE: 202008
